FAERS Safety Report 9642863 (Version 3)
Quarter: 2013Q4

REPORT INFORMATION
  Report Type: Spontaneous
  Country: US (occurrence: US)
  Receive Date: 20131024
  Receipt Date: 20131025
  Transmission Date: 20140711
  Serious: Yes (Other)
  Sender: FDA-Public Use
  Company Number: PHEH2013US019814

PATIENT
  Age: 61 Year
  Sex: Female
  Weight: 88 kg

DRUGS (5)
  1. AMLODIPINE BESYLATE\HYDROCHLOROTHIAZIDE\VALSARTAN [Suspect]
     Dosage: 1 DF (VALS 160MG, AMLO UNK, HCTZ 12.5MG) QD
     Route: 048
     Dates: start: 20130519, end: 20130916
  2. WATER PILLS [Concomitant]
     Dosage: 20 MG, UNK
  3. CRESTOR [Concomitant]
     Dosage: 20 UKN, QD
     Route: 048
  4. LASIX [Concomitant]
     Dosage: 20 UKN, QD
     Route: 048
  5. PANTOPRAZOLE [Concomitant]
     Dosage: 40 UKN, QD
     Route: 048

REACTIONS (6)
  - Cardiac failure congestive [Recovered/Resolved]
  - Oedema [Recovered/Resolved]
  - Dyspnoea [Recovered/Resolved]
  - Blood pressure increased [Recovered/Resolved]
  - Heart rate increased [Recovering/Resolving]
  - Joint swelling [Unknown]
